FAERS Safety Report 18338592 (Version 1)
Quarter: 2020Q4

REPORT INFORMATION
  Report Type: Spontaneous
  Country: US (occurrence: US)
  Receive Date: 20201002
  Receipt Date: 20201002
  Transmission Date: 20210113
  Serious: No
  Sender: FDA-Public Use
  Company Number: US-AKRON, INC.-2092370

PATIENT
  Age: 52 Year
  Sex: Female

DRUGS (1)
  1. FENTANYL CITRATE INJ, CII [Suspect]
     Active Substance: FENTANYL CITRATE

REACTIONS (2)
  - Dermatitis allergic [Unknown]
  - Drug hypersensitivity [Unknown]
